FAERS Safety Report 21106538 (Version 2)
Quarter: 2022Q3

REPORT INFORMATION
  Report Type: Spontaneous
  Country: US (occurrence: None)
  Receive Date: 20220720
  Receipt Date: 20220727
  Transmission Date: 20221027
  Serious: Yes (Other)
  Sender: FDA-Public Use
  Company Number: 2022A255710

PATIENT
  Age: 47 Year
  Sex: Male

DRUGS (53)
  1. NEXIUM 24HR [Suspect]
     Active Substance: ESOMEPRAZOLE MAGNESIUM
     Indication: Gastrooesophageal reflux disease
     Route: 048
     Dates: start: 2014, end: 2015
  2. PREVACID [Suspect]
     Active Substance: LANSOPRAZOLE
     Indication: Peptic ulcer
     Route: 065
     Dates: start: 2006, end: 2011
  3. PREVACID 24 HR [Suspect]
     Active Substance: LANSOPRAZOLE
     Indication: Peptic ulcer
     Route: 065
     Dates: start: 2009, end: 2011
  4. PROTONIX [Suspect]
     Active Substance: PANTOPRAZOLE SODIUM
     Indication: Gastrooesophageal reflux disease
     Route: 065
     Dates: start: 2011, end: 2017
  5. PROTONIX [Suspect]
     Active Substance: PANTOPRAZOLE SODIUM
     Indication: Gastrooesophageal reflux disease
     Dosage: GENERIC
     Route: 065
     Dates: start: 2011, end: 2016
  6. AZITHROMYCIN [Concomitant]
     Active Substance: AZITHROMYCIN
     Indication: Infection
  7. MINOCYCLINE [Concomitant]
     Active Substance: MINOCYCLINE HYDROCHLORIDE
     Indication: Infection
  8. FUROSEMIDE [Concomitant]
     Active Substance: FUROSEMIDE
     Indication: Fluid retention
  9. FUROSEMIDE [Concomitant]
     Active Substance: FUROSEMIDE
     Indication: Swelling
  10. SULFAMETHOXAZOLE\TRIMETHOPRIM [Concomitant]
     Active Substance: SULFAMETHOXAZOLE\TRIMETHOPRIM
     Indication: Infection
  11. PRAVASTATIN [Concomitant]
     Active Substance: PRAVASTATIN
     Indication: Blood cholesterol increased
  12. LISINOPRIL [Concomitant]
     Active Substance: LISINOPRIL
     Indication: Hypertension
  13. CALCIUM [Concomitant]
     Active Substance: CALCIUM
     Indication: Calcium deficiency
  14. ACETAMINOPHEN [Concomitant]
     Active Substance: ACETAMINOPHEN
     Indication: Pain
  15. FAMOTIDINE [Concomitant]
     Active Substance: FAMOTIDINE
  16. RANITIDINE [Concomitant]
     Active Substance: RANITIDINE
  17. TUMS [Concomitant]
     Active Substance: CALCIUM CARBONATE
  18. ALKA-SELTZER [Concomitant]
     Active Substance: ANHYDROUS CITRIC ACID\ASPIRIN\SODIUM BICARBONATE
  19. METFORMIN [Concomitant]
     Active Substance: METFORMIN HYDROCHLORIDE
  20. LANTUS [Concomitant]
     Active Substance: INSULIN GLARGINE
  21. VITAMIN E [Concomitant]
     Active Substance: .ALPHA.-TOCOPHEROL
  22. ALBUTEROL [Concomitant]
     Active Substance: ALBUTEROL
  23. LACTOBACILLUS ACIDOPHILUS [Concomitant]
     Active Substance: LACTOBACILLUS ACIDOPHILUS
  24. RALTEGRAVIR [Concomitant]
     Active Substance: RALTEGRAVIR
  25. TRUVADA [Concomitant]
     Active Substance: EMTRICITABINE\TENOFOVIR DISOPROXIL FUMARATE
  26. FLOVENT [Concomitant]
     Active Substance: FLUTICASONE PROPIONATE
  27. HEPARIN [Concomitant]
     Active Substance: HEPARIN SODIUM
  28. METOPROLOL TARTRATE [Concomitant]
     Active Substance: METOPROLOL TARTRATE
  29. SODIUM BICARBONATE [Concomitant]
     Active Substance: SODIUM BICARBONATE
  30. TIVICAY [Concomitant]
     Active Substance: DOLUTEGRAVIR SODIUM
  31. PREZISTA [Concomitant]
     Active Substance: DARUNAVIR ETHANOLATE
  32. NOVOLOG [Concomitant]
     Active Substance: INSULIN ASPART
  33. NORVIR [Concomitant]
     Active Substance: RITONAVIR
  34. SEVELAMER CARBONATE [Concomitant]
     Active Substance: SEVELAMER CARBONATE
  35. COLLAGENASE SANTYL [Concomitant]
     Active Substance: COLLAGENASE CLOSTRIDIUM HISTOLYTICUM
  36. HYDROCHLOROTHIAZIDE [Concomitant]
     Active Substance: HYDROCHLOROTHIAZIDE
  37. GLUCOPHAGE [Concomitant]
     Active Substance: METFORMIN HYDROCHLORIDE
  38. CIPRO [Concomitant]
     Active Substance: CIPROFLOXACIN HYDROCHLORIDE
  39. NITAZOXANIDE [Concomitant]
     Active Substance: NITAZOXANIDE
  40. LORATADINE [Concomitant]
     Active Substance: LORATADINE
  41. PERCOCET [Concomitant]
     Active Substance: ACETAMINOPHEN\OXYCODONE HYDROCHLORIDE
  42. FLUARIX NOS [Concomitant]
     Active Substance: INFLUENZA VIRUS VACCINE
  43. SODIUM CHLORIDE [Concomitant]
     Active Substance: SODIUM CHLORIDE
  44. POTASSIUM CHLORIDE [Concomitant]
     Active Substance: POTASSIUM CHLORIDE
  45. MORPHINE [Concomitant]
     Active Substance: MORPHINE
  46. CITRIC ACID [Concomitant]
     Active Substance: CITRIC ACID MONOHYDRATE
  47. ZOFRAN [Concomitant]
     Active Substance: ONDANSETRON HYDROCHLORIDE
  48. VISIPAQUE [Concomitant]
     Active Substance: IODIXANOL
  49. PROMETHAZINE [Concomitant]
     Active Substance: PROMETHAZINE HYDROCHLORIDE
  50. MAALOX ANTACID [Concomitant]
     Active Substance: ALUMINUM HYDROXIDE\DIMETHICONE\MAGNESIUM HYDROXIDE
  51. LEUCINE/ASPARTIC ACID/GLUTAMIC ACID/ASPARAGINE/ACETYLCYSTEINE/VALINE/L [Concomitant]
  52. ALINIA [Concomitant]
     Active Substance: NITAZOXANIDE
  53. NORVASC [Concomitant]
     Active Substance: AMLODIPINE BESYLATE

REACTIONS (11)
  - Chronic kidney disease [Not Recovered/Not Resolved]
  - End stage renal disease [Not Recovered/Not Resolved]
  - Nephritis [Not Recovered/Not Resolved]
  - Acute kidney injury [Unknown]
  - Renal tubular necrosis [Unknown]
  - Metabolic acidosis [Unknown]
  - Central hypothyroidism [Unknown]
  - Proteinuria [Unknown]
  - Nephrogenic anaemia [Unknown]
  - Hyperphosphataemia [Unknown]
  - Renal failure [Unknown]

NARRATIVE: CASE EVENT DATE: 20110101
